FAERS Safety Report 9079978 (Version 1)
Quarter: 2013Q1

REPORT INFORMATION
  Report Type: Spontaneous
  Country: FR (occurrence: FR)
  Receive Date: 20130215
  Receipt Date: 20130215
  Transmission Date: 20140127
  Serious: Yes (Disabling)
  Sender: FDA-Public Use
  Company Number: FR-ASTRAZENECA-2013SE09596

PATIENT
  Age: 17210 Day
  Sex: Male

DRUGS (3)
  1. SYMBICORT TURBUHALER [Suspect]
     Indication: ASTHMA
     Dosage: 400/12 MICROGRAMS BID
     Route: 055
  2. AERIUS [Concomitant]
  3. NASACORT [Concomitant]

REACTIONS (1)
  - Tendon rupture [Recovered/Resolved with Sequelae]
